FAERS Safety Report 10528304 (Version 1)
Quarter: 2014Q4

REPORT INFORMATION
  Report Type: Spontaneous
  Country: US (occurrence: None)
  Receive Date: 20141017
  Receipt Date: 20141017
  Transmission Date: 20150528
  Serious: Yes (Hospitalization)
  Sender: FDA-Public Use
  Company Number: None

PATIENT
  Age: 26 Year
  Sex: Female
  Weight: 55.79 kg

DRUGS (1)
  1. MIRENA [Suspect]
     Active Substance: LEVONORGESTREL
     Indication: CONTRACEPTION
     Dates: start: 20140808, end: 20141008

REACTIONS (10)
  - Mood swings [None]
  - Mobility decreased [None]
  - Decreased interest [None]
  - Vomiting [None]
  - Impaired self-care [None]
  - Psychiatric symptom [None]
  - Nausea [None]
  - Depression [None]
  - Vaginal haemorrhage [None]
  - Activities of daily living impaired [None]

NARRATIVE: CASE EVENT DATE: 20141010
